FAERS Safety Report 8167846-8 (Version None)
Quarter: 2012Q1

REPORT INFORMATION
  Report Type: 
  Country: None (occurrence: None)
  Receive Date: 20120222
  Receipt Date: 20120208
  Transmission Date: 20120608
  Serious: Yes (Hospitalization, Other)
  Sender: FDA-Public Use
  Company Number: 2012P1003324

PATIENT
  Age: 72 Year
  Sex: Female
  Weight: 74.3899 kg

DRUGS (4)
  1. CHEMOTHERAPY [Concomitant]
     Indication: HEPATIC NEOPLASM MALIGNANT
     Dates: start: 20120101
  2. FENTANYL [Suspect]
     Indication: CANCER PAIN
     Dosage: 1 PATCH;Q27H;TDER, 2 PATCHES;Q27H;TDER
     Route: 062
     Dates: start: 20120124, end: 20120125
  3. FENTANYL [Suspect]
     Indication: CANCER PAIN
     Dosage: 1 PATCH;Q27H;TDER, 2 PATCHES;Q27H;TDER
     Route: 062
     Dates: start: 20120123, end: 20120124
  4. UNSPECIFIED MEDICATIONS [Concomitant]

REACTIONS (20)
  - DIALYSIS [None]
  - ABNORMAL BEHAVIOUR [None]
  - BLOOD MAGNESIUM DECREASED [None]
  - INADEQUATE ANALGESIA [None]
  - FEELING DRUNK [None]
  - RENAL FAILURE [None]
  - BLOOD PHOSPHORUS DECREASED [None]
  - MALAISE [None]
  - DEHYDRATION [None]
  - BLOOD POTASSIUM INCREASED [None]
  - VOMITING [None]
  - ABASIA [None]
  - SPEECH DISORDER [None]
  - BLOOD GLUCOSE INCREASED [None]
  - DEVICE MALFUNCTION [None]
  - HALLUCINATION [None]
  - DYSPNOEA [None]
  - TREMOR [None]
  - HEART RATE DECREASED [None]
  - HYPERSOMNIA [None]
